FAERS Safety Report 13131620 (Version 1)
Quarter: 2017Q1

REPORT INFORMATION
  Report Type: Spontaneous
  Country: GB (occurrence: GB)
  Receive Date: 20170119
  Receipt Date: 20170119
  Transmission Date: 20170428
  Serious: Yes (Death, Other)
  Sender: FDA-Public Use
  Company Number: GB-MYLANLABS-2016M1031303

PATIENT

DRUGS (3)
  1. PARACETAMOL [Concomitant]
     Active Substance: ACETAMINOPHEN
     Indication: PRODUCT USED FOR UNKNOWN INDICATION
  2. CLOZARIL [Suspect]
     Active Substance: CLOZAPINE
     Indication: SCHIZOPHRENIA
     Dosage: UNK
     Route: 048
     Dates: start: 20011109
  3. ORAMORPH [Concomitant]
     Active Substance: MORPHINE SULFATE
     Indication: PRODUCT USED FOR UNKNOWN INDICATION
     Dosage: UNK

REACTIONS (9)
  - Cellulitis [Recovered/Resolved]
  - Skin lesion [Unknown]
  - Infection [Unknown]
  - Inflammation [Unknown]
  - White blood cell count increased [Unknown]
  - Terminal state [Unknown]
  - Body temperature increased [Recovered/Resolved]
  - Neutrophil count increased [Unknown]
  - Anal cancer [Fatal]

NARRATIVE: CASE EVENT DATE: 201511
